FAERS Safety Report 11378220 (Version 1)
Quarter: 2015Q3

REPORT INFORMATION
  Report Type: Spontaneous
  Country: US (occurrence: US)
  Receive Date: 20150811
  Receipt Date: 20150811
  Transmission Date: 20151125
  Serious: No
  Sender: FDA-Public Use
  Company Number: US-ELI_LILLY_AND_COMPANY-US201206001403

PATIENT
  Sex: Female
  Weight: 92.52 kg

DRUGS (4)
  1. REMODULIN [Concomitant]
     Active Substance: TREPROSTINIL
     Indication: PULMONARY ARTERIAL HYPERTENSION
     Dosage: 18.6 NG, UNK
     Dates: start: 20020531
  2. COUMADIN [Concomitant]
     Active Substance: WARFARIN SODIUM
  3. DIURETICS [Concomitant]
     Active Substance: UNSPECIFIED INGREDIENT
  4. ADCIRCA [Suspect]
     Active Substance: TADALAFIL

REACTIONS (1)
  - Diarrhoea [Unknown]
